FAERS Safety Report 10662776 (Version 6)
Quarter: 2015Q1

REPORT INFORMATION
  Report Type: Spontaneous
  Country: US (occurrence: US)
  Receive Date: 20141218
  Receipt Date: 20150219
  Transmission Date: 20150720
  Serious: Yes (Hospitalization)
  Sender: FDA-Public Use
  Company Number: US-UNITED THERAPEUTICS-UNT-2014-012257

PATIENT
  Age: 40 Year
  Sex: Female
  Weight: 53.52 kg

DRUGS (4)
  1. LETAIRIS [Concomitant]
     Active Substance: AMBRISENTAN
     Indication: PRODUCT USED FOR UNKNOWN INDICATION
  2. REVATIO [Concomitant]
     Active Substance: SILDENAFIL CITRATE
     Indication: PRODUCT USED FOR UNKNOWN INDICATION
  3. REMODULIN [Suspect]
     Active Substance: TREPROSTINIL
     Indication: PULMONARY ARTERIAL HYPERTENSION
     Dosage: 0.049 ?G/KG, CONTINUING
     Route: 041
     Dates: start: 20140107
  4. REMODULIN [Suspect]
     Active Substance: TREPROSTINIL
     Dosage: 0.049 ?G/KG, CONTINUING
     Route: 041
     Dates: start: 20140128

REACTIONS (3)
  - Pulmonary arterial hypertension [Unknown]
  - Pneumonia [Unknown]
  - Fluid retention [Unknown]

NARRATIVE: CASE EVENT DATE: 2014
